FAERS Safety Report 8051675-X (Version None)
Quarter: 2012Q1

REPORT INFORMATION
  Report Type: 
  Country: None (occurrence: None)
  Receive Date: 20120118
  Receipt Date: 20120109
  Transmission Date: 20120608
  Serious: No
  Sender: FDA-Public Use
  Company Number: US-BIOGENIDEC-2012BI000995

PATIENT
  Sex: Female

DRUGS (2)
  1. TYSABRI [Suspect]
     Indication: MULTIPLE SCLEROSIS
     Route: 042
     Dates: start: 20101203, end: 20110325
  2. TYSABRI [Suspect]
     Route: 042
     Dates: start: 20111024

REACTIONS (4)
  - DYSKINESIA [None]
  - MULTIPLE SCLEROSIS [None]
  - SPEECH DISORDER [None]
  - TRIGEMINAL NEURALGIA [None]
